FAERS Safety Report 18238348 (Version 1)
Quarter: 2020Q3

REPORT INFORMATION
  Report Type: Spontaneous
  Country: US (occurrence: US)
  Receive Date: 20200907
  Receipt Date: 20200907
  Transmission Date: 20201103
  Serious: No
  Sender: FDA-Public Use
  Company Number: US-PFIZER INC-2020343184

PATIENT
  Age: 43 Year
  Sex: Female
  Weight: 106.14 kg

DRUGS (1)
  1. EFFEXOR XR [Suspect]
     Active Substance: VENLAFAXINE HYDROCHLORIDE
     Indication: HOT FLUSH
     Dosage: UNK

REACTIONS (3)
  - Fatigue [Recovering/Resolving]
  - Off label use [Unknown]
  - Product use in unapproved indication [Unknown]
